FAERS Safety Report 5909739-X (Version None)
Quarter: 2008Q4

REPORT INFORMATION
  Report Type: 
  Country: None (occurrence: None)
  Receive Date: 20081006
  Receipt Date: 20081006
  Transmission Date: 20090506
  Serious: Yes (Other)
  Sender: FDA-Public Use
  Company Number: None

PATIENT
  Sex: Female
  Weight: 57.1532 kg

DRUGS (1)
  1. OCELLA [Suspect]
     Indication: CONTRACEPTION
     Dosage: .03
     Dates: start: 20080801

REACTIONS (4)
  - ALOPECIA [None]
  - DIZZINESS [None]
  - ILL-DEFINED DISORDER [None]
  - NAUSEA [None]
